FAERS Safety Report 8180627-4 (Version None)
Quarter: 2012Q1

REPORT INFORMATION
  Report Type: 
  Country: None (occurrence: None)
  Receive Date: 20120302
  Receipt Date: 20120228
  Transmission Date: 20120608
  Serious: Yes (Hospitalization, Other)
  Sender: FDA-Public Use
  Company Number: FI-PFIZER INC-2012028358

PATIENT
  Age: 19 Year
  Sex: Male

DRUGS (2)
  1. REMICADE [Concomitant]
     Dosage: UNK
  2. CELEBREX [Suspect]
     Indication: INTERVERTEBRAL DISC PROTRUSION
     Dosage: 200 MG, UNK
     Dates: start: 20111204, end: 20111201

REACTIONS (3)
  - INTRAOCULAR PRESSURE INCREASED [None]
  - BLINDNESS [None]
  - DEVICE FAILURE [None]
